FAERS Safety Report 17095686 (Version 1)
Quarter: 2019Q4

REPORT INFORMATION
  Report Type: Other
  Country: CY (occurrence: CY)
  Receive Date: 20191201
  Receipt Date: 20191201
  Transmission Date: 20200122
  Serious: Yes (Hospitalization)
  Sender: FDA-Public Use
  Company Number: CY-EMD SERONO-9131198

PATIENT
  Age: 78 Year
  Sex: Male

DRUGS (1)
  1. METFORMIN [Suspect]
     Active Substance: METFORMIN HYDROCHLORIDE
     Indication: TYPE 2 DIABETES MELLITUS
     Route: 048

REACTIONS (9)
  - Confusional state [Unknown]
  - Behaviour disorder [Unknown]
  - Vitamin B12 deficiency [Recovering/Resolving]
  - Weight decreased [Unknown]
  - Mean cell volume increased [Unknown]
  - Blood parathyroid hormone increased [Unknown]
  - Hallucination [Unknown]
  - Haemoglobin decreased [Unknown]
  - Blood thyroid stimulating hormone increased [Recovering/Resolving]
